FAERS Safety Report 14576291 (Version 3)
Quarter: 2018Q2

REPORT INFORMATION
  Report Type: Spontaneous
  Country: US (occurrence: US)
  Receive Date: 20180227
  Receipt Date: 20180413
  Transmission Date: 20180711
  Serious: Yes (Other)
  Sender: FDA-Public Use
  Company Number: US-HORIZON-RAV-0031-2018

PATIENT
  Age: 5 Year
  Sex: Male
  Weight: 18.8 kg

DRUGS (2)
  1. RAVICTI [Suspect]
     Active Substance: GLYCEROL PHENYLBUTYRATE
     Indication: ARGININOSUCCINATE LYASE DEFICIENCY
     Dosage: 1.5 ML TID STARTED IN NOV-2016, DOSE REDUCED TO 1.0 ML TID ON 16-FEB-2018
     Route: 048
     Dates: start: 2014
  2. L-ARGININE [Concomitant]
     Active Substance: ARGININE
     Indication: ARGININOSUCCINATE LYASE DEFICIENCY
     Route: 048

REACTIONS (1)
  - Petit mal epilepsy [Recovered/Resolved]

NARRATIVE: CASE EVENT DATE: 20180118
